FAERS Safety Report 6428697-5 (Version None)
Quarter: 2009Q4

REPORT INFORMATION
  Report Type: 
  Country: None (occurrence: None)
  Receive Date: 20091102
  Receipt Date: 20091026
  Transmission Date: 20100525
  Serious: Yes (Death)
  Sender: FDA-Public Use
  Company Number: 2009-04298

PATIENT
  Age: 50 Year
  Sex: Male
  Weight: 117.9 kg

DRUGS (19)
  1. VELCADE [Suspect]
     Indication: MULTIPLE MYELOMA
     Dosage: 1 MG/M2
     Dates: start: 20090825, end: 20090925
  2. DOXIL [Suspect]
     Indication: MULTIPLE MYELOMA
     Dosage: 5 MG/M2
     Dates: start: 20090825, end: 20090925
  3. DEXAMETHASONE TAB [Suspect]
     Indication: MULTIPLE MYELOMA
     Dosage: 40 MG
     Dates: start: 20090825, end: 20090925
  4. MULTIPLE VITAMINS (ERGOCALCIFEROL, TOCOPHEROL, RETINOL, VITAMIN B NOS, [Concomitant]
  5. LOVAZA [Concomitant]
  6. SAW PALMETTO (SERENOA REPENS) [Concomitant]
  7. ZANTAC 150 [Concomitant]
  8. LYRICA [Concomitant]
  9. SYNTHROID [Concomitant]
  10. MORPHINE [Concomitant]
  11. VICODIN [Concomitant]
  12. MAGNESIUM CITRATE (MAGNESIUM CITRATE) [Concomitant]
  13. MILK OF MAGNESIA TAB [Concomitant]
  14. NOVOLIN N [Concomitant]
  15. ALOXI [Concomitant]
  16. CELEXA [Concomitant]
  17. OXYGEN (OXYGEN) [Concomitant]
  18. FLEXERIL [Concomitant]
  19. ARANESP [Concomitant]

REACTIONS (1)
  - DEATH [None]
